FAERS Safety Report 17139788 (Version 1)
Quarter: 2019Q4

REPORT INFORMATION
  Report Type: Spontaneous
  Country: FR (occurrence: FR)
  Receive Date: 20191211
  Receipt Date: 20191211
  Transmission Date: 20200122
  Serious: Yes (Hospitalization)
  Sender: FDA-Public Use
  Company Number: FR-ZYDUS-021212

PATIENT
  Age: 75 Year
  Sex: Male
  Weight: 88 kg

DRUGS (24)
  1. ALPRAZOLAM. [Suspect]
     Active Substance: ALPRAZOLAM
     Indication: DEPRESSIVE SYMPTOM
     Route: 048
     Dates: start: 20170928
  2. DIFFU K [Suspect]
     Active Substance: POTASSIUM CHLORIDE
     Indication: HYPOKALAEMIA
     Dosage: 3 DF DAILY (2-1-0) 2X/DAY (BID)
     Route: 048
     Dates: start: 20170824, end: 20171003
  3. NEFOPAM/NEFOPAM HYDROCHLORIDE [Suspect]
     Active Substance: NEFOPAM
     Indication: PAIN
     Dosage: IF NECESSARY AND 1 DF, 3X/DAY (TID)
     Route: 048
  4. DAFALGAN [Suspect]
     Active Substance: ACETAMINOPHEN
     Indication: PAIN
     Dosage: 500 MG CAPSULE
     Route: 048
     Dates: start: 20171009
  5. TAVANIC [Suspect]
     Active Substance: LEVOFLOXACIN
     Indication: LUNG DISORDER
     Dosage: 250 MG SCORED FILM-COATED TABLET
     Route: 048
     Dates: start: 20170905, end: 20170919
  6. VALIUM [Suspect]
     Active Substance: DIAZEPAM
     Indication: DEPRESSIVE SYMPTOM
     Dosage: 10 MG, 3X/DAY (TID)
     Route: 048
     Dates: start: 20170101, end: 20170927
  7. IRBESARTAN. [Suspect]
     Active Substance: IRBESARTAN
     Indication: HYPERTENSION
     Dosage: 300 MG, ONCE DAILY (QD)
     Route: 048
     Dates: start: 20150101, end: 20171006
  8. COLCHICINE OPOCALCIUM [Suspect]
     Active Substance: COLCHICINE
     Indication: GOUT
     Dosage: 1 MG, ONCE DAILY (QD)
     Route: 048
     Dates: start: 20170914, end: 20170921
  9. PANTOPRAZOLE [Suspect]
     Active Substance: PANTOPRAZOLE
     Indication: GASTROOESOPHAGEAL REFLUX DISEASE
     Dosage: 20 MG, ONCE DAILY (QD)
     Route: 048
     Dates: start: 20150101, end: 20171025
  10. SEROPLEX [Suspect]
     Active Substance: ESCITALOPRAM OXALATE
     Indication: DEPRESSIVE SYMPTOM
     Dosage: 1 DF, ONCE DAILY (QD)
     Route: 048
     Dates: start: 20170101, end: 20170910
  11. COLCHICINE OPOCALCIUM [Suspect]
     Active Substance: COLCHICINE
     Indication: GOUT
     Dosage: 1 MG TABLET
     Route: 048
     Dates: start: 20170914, end: 20170921
  12. VALIUM [Suspect]
     Active Substance: DIAZEPAM
     Indication: DEPRESSIVE SYMPTOM
     Dosage: 10 MG, SCORED TABLET AND IF NECESSARY
     Route: 048
     Dates: start: 20170101, end: 20170927
  13. MIRTAZAPINE. [Suspect]
     Active Substance: MIRTAZAPINE
     Indication: DEPRESSIVE SYMPTOM
     Dosage: 15 MG, ONCE DAILY (QD)
     Route: 048
     Dates: start: 20170910
  14. AMLODIPINE [Suspect]
     Active Substance: AMLODIPINE BESYLATE
     Indication: HYPERTENSION
     Dosage: 10 MG, ONCE DAILY (QD)
     Route: 048
     Dates: start: 20170825, end: 20170927
  15. XARELTO [Suspect]
     Active Substance: RIVAROXABAN
     Indication: ATRIAL FIBRILLATION
     Dosage: 20 MG, ONCE DAILY (QD)
     Route: 048
     Dates: start: 20170824, end: 20171025
  16. NEFOPAM/NEFOPAM HYDROCHLORIDE [Suspect]
     Active Substance: NEFOPAM
     Indication: PAIN
     Dosage: IF NECESSARY AND 1 DF, 3X/DAY (TID)
     Route: 048
  17. DAFALGAN [Suspect]
     Active Substance: ACETAMINOPHEN
     Indication: PAIN
     Dosage: 1000 MG, 3X/DAY (TID)
     Route: 048
     Dates: start: 20171009
  18. METFORMIN [Suspect]
     Active Substance: METFORMIN HYDROCHLORIDE
     Indication: DIABETES MELLITUS
     Dosage: 500 MG, 2X/DAY (BID)
     Route: 048
     Dates: start: 20170824, end: 20171025
  19. BISOPROLOL [Suspect]
     Active Substance: BISOPROLOL
     Indication: HYPERTENSION
     Dosage: 1.25 MG, ONCE DAILY (QD)
     Route: 048
     Dates: start: 20171006
  20. FUROSEMIDE. [Suspect]
     Active Substance: FUROSEMIDE
     Indication: HYPERTENSION
     Dosage: 30 MG DAILY (2-1-0), 2X/DAY (BID)
     Route: 048
     Dates: start: 20170825, end: 20171003
  21. TERBUTALINE SULFATE. [Suspect]
     Active Substance: TERBUTALINE SULFATE
     Indication: LUNG DISORDER
     Route: 055
     Dates: start: 20170914, end: 20170921
  22. XARELTO [Suspect]
     Active Substance: RIVAROXABAN
     Indication: ATRIAL FIBRILLATION
     Dosage: 20 MG FILM-COATED TABLETS
     Route: 048
     Dates: start: 20170824, end: 20171025
  23. DIFFU K [Suspect]
     Active Substance: POTASSIUM CHLORIDE
     Indication: HYPOKALAEMIA
     Dosage: 3 DF DAILY (2-1-0) 2X/DAY (BID)
     Route: 048
     Dates: start: 20170824, end: 20171003
  24. TAVANIC [Suspect]
     Active Substance: LEVOFLOXACIN
     Indication: LUNG DISORDER
     Dosage: 250 MG, 2X/DAY (BID)
     Route: 048
     Dates: start: 20170905, end: 20170919

REACTIONS (1)
  - Agranulocytosis [Recovered/Resolved]

NARRATIVE: CASE EVENT DATE: 20171024
